FAERS Safety Report 5047722-X (Version None)
Quarter: 2006Q3

REPORT INFORMATION
  Report Type: 
  Country: None (occurrence: None)
  Receive Date: 20060711
  Receipt Date: 20060629
  Transmission Date: 20061208
  Serious: Yes (Life-Threatening, Other)
  Sender: FDA-Public Use
  Company Number: SP-200001624

PATIENT
  Age: 77 Year
  Sex: Male

DRUGS (10)
  1. REMICADE [Suspect]
     Route: 042
     Dates: start: 20000426
  2. REMICADE [Suspect]
     Route: 042
     Dates: start: 20000426
  3. REMICADE [Suspect]
     Indication: RHEUMATOID ARTHRITIS
     Route: 042
     Dates: start: 20000426
  4. METHOTREXATE [Suspect]
     Indication: RHEUMATOID ARTHRITIS
     Route: 065
     Dates: start: 19930101
  5. PREDNISONE [Suspect]
     Indication: DRUG USE FOR UNKNOWN INDICATION
     Route: 065
  6. IMURAN [Suspect]
     Indication: DRUG USE FOR UNKNOWN INDICATION
     Route: 065
  7. FOLIC ACID [Concomitant]
     Route: 065
  8. AMYTRIPTYLINE [Concomitant]
     Route: 065
  9. LANOXIN [Concomitant]
     Route: 065
  10. GLYBURIDE [Concomitant]
     Route: 065

REACTIONS (1)
  - BURKITT'S LYMPHOMA [None]
